FAERS Safety Report 6531659-0 (Version None)
Quarter: 2010Q1

REPORT INFORMATION
  Report Type: 
  Country: None (occurrence: None)
  Receive Date: 20100107
  Receipt Date: 20100107
  Transmission Date: 20100710
  Serious: Yes (Life-Threatening, Hospitalization, Disabling)
  Sender: FDA-Public Use
  Company Number: None

PATIENT
  Age: 52 Year
  Sex: Female
  Weight: 81.6475 kg

DRUGS (3)
  1. PROAIR HFA [Suspect]
     Indication: ASTHMA
     Dosage: AS NEEDED TOO OFTEN PO
     Route: 048
     Dates: start: 20090101, end: 20091215
  2. SEREVENT [Concomitant]
  3. ZYRTEC [Concomitant]

REACTIONS (4)
  - DYSPNOEA [None]
  - GASTROOESOPHAGEAL REFLUX DISEASE [None]
  - LUNG DISORDER [None]
  - PRODUCT SUBSTITUTION ISSUE [None]
